FAERS Safety Report 7604447-1 (Version None)
Quarter: 2011Q3

REPORT INFORMATION
  Report Type: 
  Country: None (occurrence: None)
  Receive Date: 20110712
  Receipt Date: 20110707
  Transmission Date: 20111222
  Serious: Yes (Life-Threatening, Other)
  Sender: FDA-Public Use
  Company Number: PHHY2011CH60990

PATIENT
  Age: 59 Year
  Sex: Female
  Weight: 70 kg

DRUGS (2)
  1. VANCOMYCIN [Suspect]
     Indication: CALCULUS URINARY
     Dosage: 1.1 G, UNK
     Route: 042
     Dates: start: 20110621
  2. LISINOPRIL [Concomitant]
     Indication: ESSENTIAL HYPERTENSION
     Dosage: 5 MG, QD
     Route: 048

REACTIONS (11)
  - LOSS OF CONSCIOUSNESS [None]
  - MALAISE [None]
  - NAUSEA [None]
  - PULSE ABSENT [None]
  - DRUG ADMINISTRATION ERROR [None]
  - DRUG PRESCRIBING ERROR [None]
  - HYPERSENSITIVITY [None]
  - SYNCOPE [None]
  - BRADYCARDIA [None]
  - ERYTHEMA [None]
  - INCORRECT DRUG ADMINISTRATION RATE [None]
